FAERS Safety Report 3567656 (Version 3)
Quarter: 2012Q4

REPORT INFORMATION
  Report Type: 
  Country: CA (occurrence: CA)
  Receive Date: 20001109
  Receipt Date: 20121113
  Transmission Date: 20130627
  Serious: Yes (Hospitalization)
  Sender: FDA-Public Use
  Company Number: PHBS2000CA10584

PATIENT
  Age: 86 Year
  Sex: Male

DRUGS (1)
  1. EXELON [Suspect]
     Dosage: 1.5 mg, BID
     Route: 048
     Dates: start: 20001005

REACTIONS (4)
  - Pneumonia [Recovering/Resolving]
  - White blood cell count abnormal [Recovering/Resolving]
  - Abdominal pain [Not Recovered/Not Resolved]
  - Dyspepsia [Not Recovered/Not Resolved]
